FAERS Safety Report 21605143 (Version 3)
Quarter: 2023Q2

REPORT INFORMATION
  Report Type: Report from Study
  Country: DE (occurrence: DE)
  Receive Date: 20221116
  Receipt Date: 20230426
  Transmission Date: 20230721
  Serious: Yes (Hospitalization)
  Sender: FDA-Public Use
  Company Number: DE-MYLANLABS-2022M1128478

PATIENT
  Sex: Female

DRUGS (18)
  1. HULIO [Suspect]
     Active Substance: ADALIMUMAB-FKJP
     Indication: Rheumatoid arthritis
     Dosage: 40 MILLIGRAM
     Route: 065
     Dates: start: 202108
  2. AZULFIDINE [Suspect]
     Active Substance: SULFASALAZINE
     Indication: Rheumatoid arthritis
     Dosage: 3000 MILLIGRAM
     Route: 065
     Dates: start: 20150120
  3. AZULFIDINE [Suspect]
     Active Substance: SULFASALAZINE
     Dosage: 3000 MILLIGRAM
     Route: 065
     Dates: start: 20150401
  4. AZULFIDINE [Suspect]
     Active Substance: SULFASALAZINE
     Dosage: 3000 MILLIGRAM
     Route: 065
     Dates: start: 20150707
  5. AZULFIDINE [Suspect]
     Active Substance: SULFASALAZINE
     Dosage: 3000 MILLIGRAM
     Route: 065
     Dates: start: 20160310
  6. AZULFIDINE [Suspect]
     Active Substance: SULFASALAZINE
     Dosage: 3000 MILLIGRAM
     Route: 065
     Dates: start: 20160630
  7. AZULFIDINE [Suspect]
     Active Substance: SULFASALAZINE
     Dosage: 3000 MILLIGRAM
     Route: 065
     Dates: start: 20161205
  8. AZULFIDINE [Suspect]
     Active Substance: SULFASALAZINE
     Dosage: 3000 MILLIGRAM
     Route: 065
     Dates: start: 20170612
  9. AZULFIDINE [Suspect]
     Active Substance: SULFASALAZINE
     Dosage: 3000 MILLIGRAM
     Route: 065
     Dates: start: 20180918
  10. AZULFIDINE [Suspect]
     Active Substance: SULFASALAZINE
     Dosage: 3000 MILLIGRAM
     Route: 065
     Dates: start: 20181203
  11. AZULFIDINE [Suspect]
     Active Substance: SULFASALAZINE
     Dosage: 3000 MILLIGRAM
     Route: 065
     Dates: start: 20190617
  12. AZULFIDINE [Suspect]
     Active Substance: SULFASALAZINE
     Dosage: 3000 MILLIGRAM
     Route: 065
     Dates: start: 20191212
  13. AZULFIDINE [Suspect]
     Active Substance: SULFASALAZINE
     Dosage: 3000 MILLIGRAM
     Route: 065
     Dates: start: 20200625
  14. AZULFIDINE [Suspect]
     Active Substance: SULFASALAZINE
     Dosage: 3000 MILLIGRAM
     Route: 065
     Dates: start: 20201203
  15. AZULFIDINE [Suspect]
     Active Substance: SULFASALAZINE
     Dosage: 3000 MILLIGRAM
     Route: 065
     Dates: start: 20220705
  16. CIMZIA [Suspect]
     Active Substance: CERTOLIZUMAB PEGOL
     Indication: Rheumatoid arthritis
     Dosage: 200 MILLIGRAM
     Route: 065
     Dates: start: 201501, end: 201703
  17. ETANERCEPT [Suspect]
     Active Substance: ETANERCEPT
     Indication: Rheumatoid arthritis
     Dosage: 50 MILLIGRAM
     Route: 065
     Dates: start: 201703, end: 201910
  18. HYRIMOZ [Suspect]
     Active Substance: ADALIMUMAB-ADAZ
     Indication: Rheumatoid arthritis
     Dosage: 40 MILLIGRAM
     Route: 065
     Dates: start: 201911, end: 202108

REACTIONS (1)
  - Hysterectomy [Unknown]

NARRATIVE: CASE EVENT DATE: 20220601
